FAERS Safety Report 4728254-2 (Version None)
Quarter: 2005Q3

REPORT INFORMATION
  Report Type: 
  Country: None (occurrence: None)
  Receive Date: 20050727
  Receipt Date: 20050713
  Transmission Date: 20060218
  Serious: Yes (Disabling)
  Sender: FDA-Public Use
  Company Number: 200506IM000275

PATIENT
  Age: 65 Year
  Sex: Female

DRUGS (3)
  1. ADVAFERON (A643-INTERFERON ALFACON-1) [Suspect]
     Indication: HEPATITIS C
     Dosage: 18 MIU, 6X/WEEK, SUBCUTANEOUS
     Route: 058
     Dates: start: 20020904, end: 20021001
  2. ADVAFERON (A643-INTERFERON ALFACON-1) [Suspect]
     Indication: HEPATITIS C
     Dosage: 18 MIU, 6X/WEEK, SUBCUTANEOUS
     Route: 058
     Dates: start: 20021002, end: 20030217
  3. TEMOCAPRIL [Concomitant]

REACTIONS (5)
  - ANTINUCLEAR ANTIBODY POSITIVE [None]
  - AUTOIMMUNE DISORDER [None]
  - OEDEMA PERIPHERAL [None]
  - PALLOR [None]
  - SYSTEMIC SCLEROSIS [None]
